FAERS Safety Report 15467752 (Version 2)
Quarter: 2018Q4

REPORT INFORMATION
  Report Type: Spontaneous
  Country: US (occurrence: US)
  Receive Date: 20181005
  Receipt Date: 20181102
  Transmission Date: 20190204
  Serious: No
  Sender: FDA-Public Use
  Company Number: US-PFIZER INC-2018397681

PATIENT
  Age: 62 Year
  Sex: Female
  Weight: 90.71 kg

DRUGS (4)
  1. METOPROLOL. [Concomitant]
     Active Substance: METOPROLOL
     Indication: EXTRASYSTOLES
     Dosage: 25 MG, TWICE DAILY
     Route: 048
  2. XELJANZ XR [Suspect]
     Active Substance: TOFACITINIB CITRATE
     Indication: NECK PAIN
     Dosage: 11 MG, ONCE DAILY
     Route: 048
     Dates: start: 2018
  3. XELJANZ XR [Suspect]
     Active Substance: TOFACITINIB CITRATE
     Indication: RHEUMATOID ARTHRITIS
  4. FLECAINIDE [Concomitant]
     Active Substance: FLECAINIDE
     Indication: EXTRASYSTOLES
     Dosage: 50 MG, TWICE DAILY
     Route: 048

REACTIONS (4)
  - Diarrhoea [Recovering/Resolving]
  - Drug ineffective [Unknown]
  - Weight increased [Not Recovered/Not Resolved]
  - Nausea [Recovering/Resolving]

NARRATIVE: CASE EVENT DATE: 2018
